FAERS Safety Report 16649354 (Version 3)
Quarter: 2019Q3

REPORT INFORMATION
  Report Type: Spontaneous
  Country: US (occurrence: US)
  Receive Date: 20190730
  Receipt Date: 20190909
  Transmission Date: 20191004
  Serious: Yes (Hospitalization, Other)
  Sender: FDA-Public Use
  Company Number: US-JNJFOC-20190734450

PATIENT
  Age: 73 Year
  Sex: Male

DRUGS (9)
  1. IMBRUVICA [Suspect]
     Active Substance: IBRUTINIB
     Dosage: 420 MG, QD
     Route: 048
     Dates: start: 2019, end: 20190227
  2. NOVOLOG [Concomitant]
     Active Substance: INSULIN ASPART
  3. IMBRUVICA [Suspect]
     Active Substance: IBRUTINIB
     Dosage: 280 MG, QD
     Route: 048
     Dates: start: 2019, end: 20190227
  4. IMBRUVICA [Suspect]
     Active Substance: IBRUTINIB
     Indication: CHRONIC LYMPHOCYTIC LEUKAEMIA
     Dosage: 420 MG, QD
     Route: 048
     Dates: start: 2017, end: 201901
  5. ELIQUIS [Concomitant]
     Active Substance: APIXABAN
  6. IMBRUVICA [Suspect]
     Active Substance: IBRUTINIB
     Dosage: 140 MG, QD
     Route: 048
     Dates: start: 201907
  7. SIMVASTATIN. [Concomitant]
     Active Substance: SIMVASTATIN
  8. BASAGLAR [Concomitant]
     Active Substance: INSULIN GLARGINE
     Indication: TYPE 2 DIABETES MELLITUS
     Dosage: 24 UNIT, UNK
  9. IMBRUVICA [Suspect]
     Active Substance: IBRUTINIB
     Dosage: 140 MG, QD
     Route: 048
     Dates: start: 2019, end: 2019

REACTIONS (11)
  - Rash pustular [Recovered/Resolved with Sequelae]
  - Fatigue [Unknown]
  - Cardiac disorder [Recovering/Resolving]
  - Atrial fibrillation [Unknown]
  - Skull fracture [Recovered/Resolved]
  - Nasopharyngitis [Recovered/Resolved]
  - Dehydration [Recovered/Resolved]
  - Blood blister [Unknown]
  - Eye haemorrhage [Unknown]
  - Fall [Recovered/Resolved]
  - Rash maculo-papular [Unknown]

NARRATIVE: CASE EVENT DATE: 201901
